FAERS Safety Report 5460993-0 (Version None)
Quarter: 2007Q3

REPORT INFORMATION
  Report Type: 
  Country: None (occurrence: None)
  Receive Date: 20070822
  Receipt Date: 20070608
  Transmission Date: 20080115
  Serious: Yes (Other)
  Sender: FDA-Public Use
  Company Number: 2007048178

PATIENT
  Age: 5 Month
  Sex: Male

DRUGS (1)
  1. NORVASC [Suspect]
     Indication: HYPERTENSION
     Dosage: 0.05 MG (DAILY)
     Dates: start: 20070607

REACTIONS (1)
  - ANGIOEDEMA [None]
